FAERS Safety Report 5355900-5 (Version None)
Quarter: 2007Q2

REPORT INFORMATION
  Report Type: 
  Country: None (occurrence: None)
  Receive Date: 20070613
  Receipt Date: 20070531
  Transmission Date: 20071010
  Serious: Yes (Other)
  Sender: FDA-Public Use
  Company Number: PHBS2007US09069

PATIENT
  Age: 11 Year
  Sex: Female

DRUGS (4)
  1. METHYLPHENIDATE HCL [Suspect]
     Dosage: 30 MG/DAY
     Route: 065
  2. VALPROATE SODIUM [Concomitant]
     Dosage: 750 MG/DAY
     Route: 065
  3. RISPERIDONE [Suspect]
     Dosage: 1.75 MG/DAY
     Route: 065
  4. RISPERIDONE [Suspect]
     Dosage: 2 MG/DAY
     Route: 065

REACTIONS (4)
  - AGGRESSION [None]
  - DYSTONIA [None]
  - MUSCLE SPASMS [None]
  - TORTICOLLIS [None]
